FAERS Safety Report 26151055 (Version 1)
Quarter: 2025Q4

REPORT INFORMATION
  Report Type: Spontaneous
  Country: US (occurrence: None)
  Receive Date: 20251212
  Receipt Date: 20251212
  Transmission Date: 20260117
  Serious: Yes (Life-Threatening, Hospitalization, Other)
  Sender: ORGANON
  Company Number: US-MLMSERVICE-20251201-PI732940-00208-1

PATIENT
  Age: 43 Year
  Sex: Female

DRUGS (2)
  1. COZAAR [Suspect]
     Active Substance: LOSARTAN POTASSIUM
     Dosage: 50 MILLIGRAM
  2. COZAAR [Suspect]
     Active Substance: LOSARTAN POTASSIUM
     Dosage: INCREASED TO 75 MILLIGRAM IN WEEK TWO

REACTIONS (1)
  - Thrombotic thrombocytopenic purpura [Recovering/Resolving]
